FAERS Safety Report 21629184 (Version 1)
Quarter: 2022Q4

REPORT INFORMATION
  Report Type: Spontaneous
  Country: US (occurrence: US)
  Receive Date: 20221122
  Receipt Date: 20221122
  Transmission Date: 20230113
  Serious: No
  Sender: FDA-Public Use
  Company Number: US-SA-SAC20221121000283

PATIENT
  Sex: Female

DRUGS (10)
  1. DUPIXENT [Suspect]
     Active Substance: DUPILUMAB
     Indication: Breast cancer female
     Dosage: UNK
     Route: 065
  2. DUPIXENT [Suspect]
     Active Substance: DUPILUMAB
     Indication: Eczema
  3. ATORVASTATIN [Concomitant]
     Active Substance: ATORVASTATIN
  4. CITALOPRAM [Concomitant]
     Active Substance: CITALOPRAM HYDROBROMIDE
  5. GABAPENTIN [Concomitant]
     Active Substance: GABAPENTIN
  6. IBRANCE [Concomitant]
     Active Substance: PALBOCICLIB
  7. LISINOPRIL [Concomitant]
     Active Substance: LISINOPRIL
  8. POTASSIUM CHLORIDE [Concomitant]
     Active Substance: POTASSIUM CHLORIDE
  9. VITAMIN D NOS [Concomitant]
     Active Substance: VITAMIN D NOS
  10. HYDROCHLOROTHIAZIDE [Concomitant]
     Active Substance: HYDROCHLOROTHIAZIDE

REACTIONS (2)
  - Product use in unapproved indication [Unknown]
  - Drug ineffective [Unknown]
